FAERS Safety Report 13869869 (Version 1)
Quarter: 2017Q3

REPORT INFORMATION
  Report Type: Report from Study
  Country: GB (occurrence: GB)
  Receive Date: 20170815
  Receipt Date: 20170815
  Transmission Date: 20171127
  Serious: Yes (Death, Other)
  Sender: FDA-Public Use
  Company Number: GB-OTSUKA-2017_017773

PATIENT
  Age: 66 Year
  Sex: Male
  Weight: 86.6 kg

DRUGS (49)
  1. MYCOPHENOLATE MOFETIL. [Concomitant]
     Active Substance: MYCOPHENOLATE MOFETIL
     Indication: IMMUNOSUPPRESSANT DRUG THERAPY
     Dosage: UNK
     Route: 065
     Dates: start: 20160828, end: 20160904
  2. TINZAPARIN [Concomitant]
     Active Substance: TINZAPARIN
     Indication: NEUTROPENIC SEPSIS
     Dosage: UNK
     Route: 065
     Dates: start: 20160828, end: 20160828
  3. CALCIUM CHLORIDE. [Concomitant]
     Active Substance: CALCIUM CHLORIDE
     Indication: PRODUCT USED FOR UNKNOWN INDICATION
     Dosage: UNK
     Route: 065
  4. BUSULFAN. [Suspect]
     Active Substance: BUSULFAN
     Indication: MYELODYSPLASTIC SYNDROME
  5. ALFENTANIL. [Concomitant]
     Active Substance: ALFENTANIL
     Indication: PAIN
     Dosage: UNK
     Route: 065
     Dates: start: 20100829, end: 20160901
  6. ACTRAPID [Concomitant]
     Active Substance: INSULIN HUMAN
     Indication: DIABETES MELLITUS
     Dosage: UNK
     Route: 065
     Dates: start: 20160903, end: 20160903
  7. LOSARTAN. [Concomitant]
     Active Substance: LOSARTAN
     Indication: HYPERTENSION
     Dosage: UNK
     Route: 065
     Dates: start: 20160828, end: 20160904
  8. URSODEOXYCHOLIC ACID [Concomitant]
     Active Substance: URSODIOL
     Indication: PROPHYLAXIS
  9. FUROSEMIDE. [Concomitant]
     Active Substance: FUROSEMIDE
     Indication: OEDEMA
     Dosage: UNK
     Route: 065
     Dates: start: 20160831, end: 20160831
  10. LINEZOLID. [Concomitant]
     Active Substance: LINEZOLID
     Indication: SEPSIS
     Dosage: UNK
     Route: 065
     Dates: start: 20160829, end: 20160904
  11. ADRENALINE [Concomitant]
     Active Substance: EPINEPHRINE
     Indication: PROPHYLAXIS
  12. AMSACRINE [Suspect]
     Active Substance: AMSACRINE
     Indication: MYELODYSPLASTIC SYNDROME
  13. METOPROLOL. [Concomitant]
     Active Substance: METOPROLOL
     Indication: MYOCARDIAL INFARCTION
     Dosage: UNK
     Route: 065
     Dates: start: 20160829, end: 20160829
  14. ISONIAZID. [Concomitant]
     Active Substance: ISONIAZID
     Indication: INFECTION
     Dosage: UNK
     Route: 065
     Dates: start: 20160828, end: 20160904
  15. PARACETAMOL [Concomitant]
     Active Substance: ACETAMINOPHEN
     Indication: PAIN
     Dosage: UNK
     Route: 065
     Dates: start: 20160828, end: 20160901
  16. ATRACURIUM [Concomitant]
     Active Substance: ATRACURIUM
     Indication: PALLIATIVE CARE
     Dosage: UNK
     Route: 065
     Dates: start: 20160903, end: 20160903
  17. CIPROFLOXACIN. [Concomitant]
     Active Substance: CIPROFLOXACIN
     Indication: SEPSIS
     Dosage: UNK
     Route: 065
  18. ADRENALINE [Concomitant]
     Active Substance: EPINEPHRINE
     Indication: HYPOTENSION
     Dosage: UNK
     Route: 065
     Dates: start: 20160904, end: 20160904
  19. BUSULFAN. [Suspect]
     Active Substance: BUSULFAN
     Indication: ACUTE MYELOID LEUKAEMIA
     Dosage: 3.2 MG/KG, QD (1/DAY)
     Route: 042
     Dates: start: 20160808, end: 20160809
  20. FLUDARABINE [Suspect]
     Active Substance: FLUDARABINE PHOSPHATE
     Indication: MYELODYSPLASTIC SYNDROME
  21. CYTARABINE. [Suspect]
     Active Substance: CYTARABINE
     Indication: ACUTE MYELOID LEUKAEMIA
     Dosage: 1 G/M2, QD (1/DAY)
     Route: 042
     Dates: start: 20160802, end: 20160805
  22. ERYTHROMYCIN. [Concomitant]
     Active Substance: ERYTHROMYCIN
     Indication: ANAEMIA
     Dosage: UNK
     Route: 065
     Dates: start: 20160830, end: 20160830
  23. METOCLOPRAMIDE. [Concomitant]
     Active Substance: METOCLOPRAMIDE
     Indication: NAUSEA
     Dosage: UNK
     Route: 065
     Dates: start: 20160830, end: 20160904
  24. ONDANSETRON [Concomitant]
     Active Substance: ONDANSETRON
     Indication: PROPHYLAXIS OF NAUSEA AND VOMITING
     Dosage: UNK
     Route: 065
     Dates: start: 20160828, end: 20160901
  25. CICLOSPORIN [Concomitant]
     Active Substance: CYCLOSPORINE
     Indication: TRANSPLANT
     Dosage: UNK
     Route: 065
     Dates: start: 20160828, end: 20160902
  26. MAGNESIUM SULPHATE [Concomitant]
     Active Substance: MAGNESIUM SULFATE
     Indication: HYPOMAGNESAEMIA
  27. PROPOFOL. [Concomitant]
     Active Substance: PROPOFOL
     Indication: RELAXATION THERAPY
     Dosage: UNK
     Route: 065
     Dates: start: 20160829, end: 20160901
  28. AMBISOME [Concomitant]
     Active Substance: AMPHOTERICIN B
     Indication: SEPSIS
     Dosage: UNK
     Route: 065
     Dates: start: 20160901, end: 20160903
  29. COTRIMOXAZOLE [Concomitant]
     Active Substance: SULFAMETHOXAZOLE\TRIMETHOPRIM
     Indication: SEPSIS
     Dosage: UNK
     Route: 065
     Dates: start: 20160830, end: 20160902
  30. MAGNESIUM SULPHATE [Concomitant]
     Active Substance: MAGNESIUM SULFATE
     Indication: PROPHYLAXIS
     Dosage: UNK
     Route: 065
     Dates: start: 20160829, end: 20160829
  31. VASOPRESSIN. [Concomitant]
     Active Substance: VASOPRESSIN
     Indication: PROPHYLAXIS
     Dosage: UNK
     Route: 065
     Dates: start: 20160904, end: 20160904
  32. POTASSIUM CHLORIDE. [Concomitant]
     Active Substance: POTASSIUM CHLORIDE
     Indication: PROPHYLAXIS
     Dosage: UNK
     Route: 065
     Dates: start: 20160904, end: 20160904
  33. METHYLPREDNISOLONE. [Concomitant]
     Active Substance: METHYLPREDNISOLONE
     Indication: PROPHYLAXIS AGAINST GRAFT VERSUS HOST DISEASE
     Dosage: UNK
     Route: 065
     Dates: start: 20160830, end: 20160904
  34. CYTARABINE. [Suspect]
     Active Substance: CYTARABINE
     Indication: MYELODYSPLASTIC SYNDROME
  35. POTASSIUM CHLORIDE. [Concomitant]
     Active Substance: POTASSIUM CHLORIDE
     Indication: HYPOKALAEMIA
  36. OMEPRAZOLE. [Concomitant]
     Active Substance: OMEPRAZOLE
     Indication: GASTROOESOPHAGEAL REFLUX PROPHYLAXIS
     Dosage: UNK
     Route: 065
     Dates: start: 20160830, end: 20160904
  37. LACTULOSE. [Concomitant]
     Active Substance: LACTULOSE
     Indication: CONSTIPATION
     Dosage: UNK
     Route: 065
     Dates: start: 20160901, end: 20160903
  38. METOPROLOL. [Concomitant]
     Active Substance: METOPROLOL
     Indication: PROPHYLAXIS
  39. ACICLOVIR [Concomitant]
     Active Substance: ACYCLOVIR
     Indication: PROPHYLAXIS
     Dosage: UNK
     Route: 065
     Dates: start: 20160902, end: 20160904
  40. NOREPINEPHRINE. [Concomitant]
     Active Substance: NOREPINEPHRINE
     Indication: HYPOTENSION
  41. DEFIBROTIDE [Concomitant]
     Active Substance: DEFIBROTIDE (BOVINE)
     Indication: ANTICOAGULANT THERAPY
     Dosage: UNK
     Route: 065
     Dates: start: 20160828, end: 20160904
  42. G-CSF [Concomitant]
     Active Substance: GRANULOCYTE COLONY-STIMULATING FACTOR NOS
     Indication: NEUTROPENIA
     Dosage: UNK
     Route: 065
     Dates: start: 20160828, end: 20160901
  43. SODIUM CHLORIDE. [Concomitant]
     Active Substance: SODIUM CHLORIDE
     Indication: ANTIBIOTIC PROPHYLAXIS
     Dosage: UNK
     Route: 065
     Dates: start: 20160828, end: 20160901
  44. CHLORHEXIDINE GLUCONATE. [Concomitant]
     Active Substance: CHLORHEXIDINE GLUCONATE
     Indication: ANTIBIOTIC PROPHYLAXIS
     Dosage: UNK
     Route: 065
     Dates: start: 20160829, end: 20160903
  45. FLUDARABINE [Suspect]
     Active Substance: FLUDARABINE PHOSPHATE
     Indication: ACUTE MYELOID LEUKAEMIA
     Dosage: 60 MG/M2, QD (1/DAY)
     Route: 042
     Dates: start: 20160802, end: 20160810
  46. AMSACRINE [Suspect]
     Active Substance: AMSACRINE
     Indication: ACUTE MYELOID LEUKAEMIA
     Dosage: 202 MG/M2, QD (1/DAY)
     Route: 042
     Dates: start: 20160802, end: 20160805
  47. NOREPINEPHRINE. [Concomitant]
     Active Substance: NOREPINEPHRINE
     Indication: PROPHYLAXIS
     Dosage: UNK
     Route: 065
     Dates: start: 20160829, end: 20160903
  48. LABETALOL [Concomitant]
     Active Substance: LABETALOL\LABETALOL HYDROCHLORIDE
     Indication: HYPERTENSION
     Dosage: UNK
     Route: 065
     Dates: start: 20160829, end: 20160829
  49. URSODEOXYCHOLIC ACID [Concomitant]
     Active Substance: URSODIOL
     Indication: CHOLELITHIASIS
     Dosage: UNK
     Route: 065
     Dates: start: 20160828, end: 20160904

REACTIONS (1)
  - Neutropenic sepsis [Fatal]

NARRATIVE: CASE EVENT DATE: 20160822
